FAERS Safety Report 5689986-5 (Version None)
Quarter: 2008Q2

REPORT INFORMATION
  Report Type: 
  Country: None (occurrence: None)
  Receive Date: 20080401
  Receipt Date: 20070717
  Transmission Date: 20081010
  Serious: No
  Sender: FDA-Public Use
  Company Number: A0664578A

PATIENT
  Age: 8 Year
  Sex: Female

DRUGS (2)
  1. FLOVENT [Suspect]
     Indication: ASTHMA
     Dosage: 2PUFF TWICE PER DAY
     Route: 055
     Dates: end: 20070610
  2. COMBIVENT [Concomitant]

REACTIONS (1)
  - WHEEZING [None]
